FAERS Safety Report 12627079 (Version 1)
Quarter: 2016Q3

REPORT INFORMATION
  Report Type: Spontaneous
  Country: GR (occurrence: GR)
  Receive Date: 20160805
  Receipt Date: 20160805
  Transmission Date: 20161109
  Serious: Yes (Hospitalization, Other)
  Sender: FDA-Public Use
  Company Number: GR-AMGEN-GRCSP2016099869

PATIENT
  Age: 53 Year
  Sex: Male
  Weight: 69 kg

DRUGS (2)
  1. XGEVA [Suspect]
     Active Substance: DENOSUMAB
     Indication: OSTEOPOROTIC FRACTURE
     Dosage: UNK
     Route: 065
  2. CALCIUM [Concomitant]
     Active Substance: CALCIUM
     Dosage: 500 MG, BID

REACTIONS (6)
  - Osteoporosis [Not Recovered/Not Resolved]
  - Spinal fracture [Unknown]
  - Hyperadrenocorticism [Unknown]
  - Pigmentation disorder [Unknown]
  - Drug ineffective [Unknown]
  - Secondary hyperthyroidism [Unknown]
